APPROVED DRUG PRODUCT: MIRABEGRON
Active Ingredient: MIRABEGRON
Strength: 50MG
Dosage Form/Route: TABLET, EXTENDED RELEASE;ORAL
Application: A209434 | Product #002
Applicant: APOTEX INC
Approved: Jan 2, 2025 | RLD: No | RS: No | Type: DISCN